FAERS Safety Report 7788315-0 (Version None)
Quarter: 2011Q3

REPORT INFORMATION
  Report Type: 
  Country: None (occurrence: None)
  Receive Date: 20110930
  Receipt Date: 20110928
  Transmission Date: 20111222
  Serious: Yes (Death)
  Sender: FDA-Public Use
  Company Number: US-ASTELLAS-2011US006276

PATIENT
  Sex: Male

DRUGS (4)
  1. ERLOTINIB HYDROCHLORIDE [Suspect]
     Dosage: 100 MG, UID/QD
     Route: 048
  2. ERLOTINIB HYDROCHLORIDE [Suspect]
     Indication: PRODUCT USED FOR UNKNOWN INDICATION
     Dosage: 25 MG, UID/QD X 7 DAYS
     Route: 048
     Dates: start: 20110701
  3. ERLOTINIB HYDROCHLORIDE [Suspect]
     Dosage: 50 MG, UID/QD X 7 DAYS
     Route: 048
  4. ERLOTINIB HYDROCHLORIDE [Suspect]
     Dosage: 75 MG, UID/QD X 7 DAYS
     Route: 048

REACTIONS (1)
  - DEATH [None]
